FAERS Safety Report 9076874 (Version 1)
Quarter: 2013Q1

REPORT INFORMATION
  Report Type: Report from Study
  Country: US (occurrence: US)
  Receive Date: 20130129
  Receipt Date: 20130129
  Transmission Date: 20140127
  Serious: No
  Sender: FDA-Public Use
  Company Number: US-ABBOTT-12P-163-0941061-00

PATIENT
  Age: 54 Year
  Sex: Female

DRUGS (9)
  1. HUMIRA 40 MG/0.8 ML PEN [Suspect]
     Indication: CROHN^S DISEASE
     Dates: start: 20120518
  2. IMURAN [Concomitant]
     Indication: CROHN^S DISEASE
     Dosage: 75MG DAILY
  3. NEURONTIN [Concomitant]
     Indication: NEUROPATHY PERIPHERAL
     Dosage: 100MG DAILY
  4. CYMBALTA [Concomitant]
     Indication: PAIN MANAGEMENT
     Dosage: 90MG DAILY
  5. ASACOL [Concomitant]
     Indication: CROHN^S DISEASE
  6. TRAZODONE [Concomitant]
     Indication: PAIN
  7. AMBIEN [Concomitant]
     Indication: INSOMNIA
     Dosage: AT BEDTIME
  8. CLARITIN [Concomitant]
     Indication: SEASONAL ALLERGY
  9. COSOPT [Concomitant]
     Indication: GLAUCOMA
     Dosage: 1 DROP EACH EYE TWICE DAILY
     Route: 047

REACTIONS (4)
  - Rash [Not Recovered/Not Resolved]
  - Rash pruritic [Not Recovered/Not Resolved]
  - Rash macular [Not Recovered/Not Resolved]
  - Injection site papule [Not Recovered/Not Resolved]
